FAERS Safety Report 8030688-8 (Version None)
Quarter: 2012Q1

REPORT INFORMATION
  Report Type: 
  Country: None (occurrence: None)
  Receive Date: 20120109
  Receipt Date: 20120105
  Transmission Date: 20120608
  Serious: No
  Sender: FDA-Public Use
  Company Number: US-JNJFOC-20120101946

PATIENT
  Sex: Female

DRUGS (6)
  1. CITALOPRAM [Concomitant]
     Route: 048
  2. PERCOCET [Concomitant]
     Indication: PAIN
     Route: 048
  3. FENTANYL-100 [Suspect]
     Indication: PAIN
     Route: 065
     Dates: start: 20100101
  4. GABAPENTIN [Concomitant]
     Route: 048
  5. TRAZODONE HCL [Concomitant]
     Route: 048
  6. TIZANIDINE HCL [Concomitant]
     Route: 048

REACTIONS (2)
  - PRODUCT ADHESION ISSUE [None]
  - WRONG TECHNIQUE IN DRUG USAGE PROCESS [None]
